FAERS Safety Report 9785342 (Version 1)
Quarter: 2013Q4

REPORT INFORMATION
  Report Type: Spontaneous
  Country: US (occurrence: US)
  Receive Date: 20131227
  Receipt Date: 20131227
  Transmission Date: 20140711
  Serious: Yes (Other)
  Sender: FDA-Public Use
  Company Number: US-MYLANLABS-2013S1013738

PATIENT
  Sex: Female
  Weight: 70.31 kg

DRUGS (4)
  1. LEVETIRACETAM TABLETS [Suspect]
     Indication: CONVULSION
  2. KEPPRA [Suspect]
     Indication: CONVULSION
  3. ATENOLOL [Concomitant]
  4. VITAMINS [Concomitant]

REACTIONS (2)
  - Drug effect decreased [Recovered/Resolved]
  - Convulsion [Recovered/Resolved]
